FAERS Safety Report 5380187-7 (Version None)
Quarter: 2007Q3

REPORT INFORMATION
  Report Type: 
  Country: None (occurrence: None)
  Receive Date: 20070706
  Receipt Date: 20070509
  Transmission Date: 20080115
  Serious: No
  Sender: FDA-Public Use
  Company Number: A0650619A

PATIENT
  Age: 42 Year
  Sex: Female

DRUGS (6)
  1. TYKERB [Suspect]
     Indication: BREAST CANCER
     Dosage: 5TAB PER DAY
     Route: 048
     Dates: start: 20070420
  2. HERCEPTIN [Concomitant]
  3. LISINOPRIL [Concomitant]
  4. PROTONIX [Concomitant]
  5. WELCHOL [Concomitant]
  6. LEXAPRO [Concomitant]

REACTIONS (7)
  - ANXIETY [None]
  - DIARRHOEA [None]
  - DRY SKIN [None]
  - FATIGUE [None]
  - HYPERAESTHESIA [None]
  - MOUTH ULCERATION [None]
  - SLUGGISHNESS [None]
